FAERS Safety Report 17717148 (Version 1)
Quarter: 2020Q2

REPORT INFORMATION
  Report Type: Spontaneous
  Country: US (occurrence: US)
  Receive Date: 20200428
  Receipt Date: 20200428
  Transmission Date: 20200714
  Serious: No
  Sender: FDA-Public Use
  Company Number: US-PFIZER INC-2020170448

PATIENT
  Age: 56 Year
  Sex: Female
  Weight: 162.39 kg

DRUGS (1)
  1. RELPAX [Suspect]
     Active Substance: ELETRIPTAN HYDROBROMIDE
     Indication: MIGRAINE
     Dosage: 40MG-TAKE 1 AT ONSET OF MIGRAINE, REPEAT IN 2 HOURS IF WORKED SOME BUT NOT ENOUGH

REACTIONS (1)
  - Feeling abnormal [Unknown]

NARRATIVE: CASE EVENT DATE: 20200424
